FAERS Safety Report 4480802-6 (Version None)
Quarter: 2004Q4

REPORT INFORMATION
  Report Type: 
  Country: None (occurrence: None)
  Receive Date: 20041019
  Receipt Date: 20041004
  Transmission Date: 20050328
  Serious: Yes (Other)
  Sender: FDA-Public Use
  Company Number: 2004238055US

PATIENT
  Sex: Female

DRUGS (4)
  1. PROVERA [Suspect]
     Indication: HORMONE REPLACEMENT THERAPY
     Dates: start: 19940701, end: 20000601
  2. PREMARIN [Suspect]
     Indication: HORMONE REPLACEMENT THERAPY
     Dates: start: 19940701, end: 19990701
  3. PREMPRO [Suspect]
     Indication: HORMONE REPLACEMENT THERAPY
     Dates: start: 19950701, end: 20010101
  4. ESTRATEST [Suspect]
     Indication: HORMONE REPLACEMENT THERAPY
     Dates: start: 19990701, end: 20000801

REACTIONS (1)
  - BREAST CANCER FEMALE [None]
